FAERS Safety Report 19268325 (Version 1)
Quarter: 2021Q2

REPORT INFORMATION
  Report Type: Spontaneous
  Country: IT (occurrence: IT)
  Receive Date: 20210517
  Receipt Date: 20210517
  Transmission Date: 20210717
  Serious: Yes (Death)
  Sender: FDA-Public Use
  Company Number: IT-TAIHO ONCOLOGY  INC-IM-2021-00161

PATIENT
  Age: 77 Year
  Sex: Male

DRUGS (3)
  1. HEPARIN SODIUM. [Concomitant]
     Active Substance: HEPARIN SODIUM
     Indication: FIBRIN D DIMER INCREASED
     Dosage: 1 DF, QD
     Route: 058
     Dates: start: 2019
  2. LONSURF [Suspect]
     Active Substance: TIPIRACIL HYDROCHLORIDE\TRIFLURIDINE
     Indication: COLORECTAL CANCER METASTATIC
     Dosage: 2 DF, BID
     Route: 048
     Dates: start: 20210301
  3. KEPPRA [Concomitant]
     Active Substance: LEVETIRACETAM
     Indication: SEIZURE
     Dosage: 500 MG, BID
     Route: 048
     Dates: start: 202101

REACTIONS (10)
  - Abdominal pain [Unknown]
  - Death [Fatal]
  - Ascites [Recovering/Resolving]
  - Anaemia [Recovering/Resolving]
  - Asthenia [Not Recovered/Not Resolved]
  - White blood cell count decreased [Recovered/Resolved]
  - Decreased appetite [Recovering/Resolving]
  - Blood creatinine increased [Not Recovered/Not Resolved]
  - Somnolence [Not Recovered/Not Resolved]
  - Neutropenia [Recovered/Resolved]

NARRATIVE: CASE EVENT DATE: 202103
